FAERS Safety Report 6055301-0 (Version None)
Quarter: 2009Q1

REPORT INFORMATION
  Report Type: 
  Country: None (occurrence: None)
  Receive Date: 20090128
  Receipt Date: 20090116
  Transmission Date: 20090719
  Serious: Yes (Other)
  Sender: FDA-Public Use
  Company Number: GB-PFIZER INC-2009157217

PATIENT

DRUGS (7)
  1. LYRICA [Suspect]
     Indication: NEURALGIA
     Route: 048
     Dates: start: 20081222, end: 20081227
  2. CALCICHEW [Concomitant]
  3. LANSOPRAZOLE [Concomitant]
  4. METHOTREXATE [Concomitant]
     Indication: RHEUMATOID ARTHRITIS
     Dosage: 7.5 MG, UNK
     Route: 048
     Dates: start: 20081222
  5. PREDNISOLONE [Concomitant]
  6. RAMIPRIL [Concomitant]
  7. RISEDRONATE SODIUM [Concomitant]

REACTIONS (2)
  - ACNE [None]
  - RASH [None]
